FAERS Safety Report 8859273 (Version 2)
Quarter: 2014Q3

REPORT INFORMATION
  Report Type: Report from Study
  Country: US (occurrence: US)
  Receive Date: 20121024
  Receipt Date: 20140919
  Transmission Date: 20150326
  Serious: Yes (Other)
  Sender: FDA-Public Use
  Company Number: US-ROCHE-1130045

PATIENT
  Sex: Female
  Weight: 55 kg

DRUGS (8)
  1. BENADRYL [Concomitant]
     Active Substance: DIPHENHYDRAMINE HYDROCHLORIDE
  2. CALAMINE LOTION [Concomitant]
     Active Substance: CALAMINE LOTION
  3. RANITIDINE [Concomitant]
     Active Substance: RANITIDINE\RANITIDINE HYDROCHLORIDE
     Indication: PRURITUS
     Route: 065
  4. HERCEPTIN [Suspect]
     Active Substance: TRASTUZUMAB
     Indication: BREAST CANCER METASTATIC
     Route: 042
  5. LEVO-DROMORAN [Concomitant]
     Active Substance: LEVORPHANOL TARTRATE
  6. XELODA [Suspect]
     Active Substance: CAPECITABINE
     Indication: BREAST CANCER METASTATIC
     Route: 065
  7. DURAGESIC [Concomitant]
     Active Substance: FENTANYL
     Route: 065
  8. HERCEPTIN [Suspect]
     Active Substance: TRASTUZUMAB
     Route: 042

REACTIONS (11)
  - Hepatic enzyme increased [Unknown]
  - Hepatic lesion [Unknown]
  - Muscular weakness [Unknown]
  - Skin papilloma [Unknown]
  - Pruritus [Unknown]
  - Pleural effusion [Unknown]
  - Decubitus ulcer [Unknown]
  - Metastasis [Unknown]
  - Muscle atrophy [Unknown]
  - Anaemia [Unknown]
  - Pain [Unknown]
